FAERS Safety Report 7329224-0 (Version None)
Quarter: 2011Q1

REPORT INFORMATION
  Report Type: 
  Country: None (occurrence: None)
  Receive Date: 20110303
  Receipt Date: 20110302
  Transmission Date: 20110831
  Serious: Yes (Hospitalization, Other)
  Sender: FDA-Public Use
  Company Number: A0915418A

PATIENT
  Age: 45 Year
  Sex: Female

DRUGS (2)
  1. ZOFRAN [Suspect]
     Indication: PROCEDURAL NAUSEA
  2. BC [Suspect]
     Dosage: 2%DS PER DAY
     Route: 048

REACTIONS (15)
  - GASTRIC ULCER HAEMORRHAGE [None]
  - RESPIRATORY FAILURE [None]
  - GASTRIC INFECTION [None]
  - VOMITING [None]
  - OBSTRUCTION GASTRIC [None]
  - DRUG INEFFECTIVE [None]
  - MALAISE [None]
  - ABDOMINAL PAIN UPPER [None]
  - NAUSEA [None]
  - DEPENDENCE [None]
  - GASTRECTOMY [None]
  - GASTRIC HAEMORRHAGE [None]
  - SURGERY [None]
  - COMA [None]
  - DRUG ADMINISTRATION ERROR [None]
